FAERS Safety Report 8335094-4 (Version None)
Quarter: 2012Q2

REPORT INFORMATION
  Report Type: 
  Country: None (occurrence: None)
  Receive Date: 20120503
  Receipt Date: 20120419
  Transmission Date: 20120825
  Serious: Yes (Life-Threatening, Other)
  Sender: FDA-Public Use
  Company Number: AU-JNJFOC-20101101626

PATIENT
  Age: 69 Year
  Sex: Male
  Weight: 75 kg

DRUGS (1)
  1. STELARA [Suspect]
     Indication: PSORIASIS
     Dosage: 3 DOSES TOTAL AT WEEKS 0, 4 AND 16.
     Route: 058
     Dates: start: 20100515, end: 20100901

REACTIONS (1)
  - SQUAMOUS CELL CARCINOMA OF SKIN [None]
